FAERS Safety Report 4273240-2 (Version None)
Quarter: 2004Q1

REPORT INFORMATION
  Report Type: 
  Country: None (occurrence: None)
  Receive Date: 20040116
  Receipt Date: 20030320
  Transmission Date: 20041129
  Serious: Yes (Death, Life-Threatening)
  Sender: FDA-Public Use
  Company Number: FR-ROCHE-334177

PATIENT
  Age: 30 Year
  Sex: Female

DRUGS (6)
  1. LOXEN [Suspect]
     Indication: PREGNANCY INDUCED HYPERTENSION
     Route: 048
  2. ATARAX [Suspect]
     Indication: DRUG USE FOR UNKNOWN INDICATION
     Route: 048
  3. FRAGMIN [Suspect]
     Indication: DRUG USE FOR UNKNOWN INDICATION
     Route: 058
  4. TRANDATE [Suspect]
     Indication: DRUG USE FOR UNKNOWN INDICATION
     Route: 048
  5. ACETAMINOPHEN [Suspect]
     Indication: DRUG USE FOR UNKNOWN INDICATION
     Route: 042
  6. MOPRAL [Suspect]
     Indication: DRUG USE FOR UNKNOWN INDICATION
     Route: 042

REACTIONS (5)
  - ANAEMIA [None]
  - ESCHERICHIA SEPSIS [None]
  - HYPOGLYCAEMIA [None]
  - LEUKOPENIA [None]
  - THROMBOCYTOPENIA [None]
